FAERS Safety Report 7334486-X (Version None)
Quarter: 2011Q1

REPORT INFORMATION
  Report Type: 
  Country: None (occurrence: None)
  Receive Date: 20110307
  Receipt Date: 20110228
  Transmission Date: 20110831
  Serious: Yes (Other)
  Sender: FDA-Public Use
  Company Number: US-AMGEN-USASP2011011433

PATIENT
  Age: 72 Year
  Sex: Male

DRUGS (1)
  1. ENBREL [Suspect]
     Indication: PSORIASIS
     Dosage: 50 MG, 2 TIMES/WK
     Dates: start: 20110101, end: 20110127

REACTIONS (5)
  - DRUG INEFFECTIVE [None]
  - URTICARIA [None]
  - UNRESPONSIVE TO STIMULI [None]
  - APHASIA [None]
  - CENTRAL NERVOUS SYSTEM LESION [None]
